FAERS Safety Report 6557216-8 (Version None)
Quarter: 2010Q1

REPORT INFORMATION
  Report Type: 
  Country: None (occurrence: None)
  Receive Date: 20100127
  Receipt Date: 20100127
  Transmission Date: 20100710
  Serious: Yes (Hospitalization)
  Sender: FDA-Public Use
  Company Number: None

PATIENT
  Age: 56 Year
  Sex: Female
  Weight: 108.8633 kg

DRUGS (2)
  1. CREON [Suspect]
     Indication: ABDOMINAL PAIN
     Dosage: 1 TAB WITH MEALS + SNACK PO
     Route: 048
     Dates: start: 20100123, end: 20100123
  2. CREON [Suspect]
     Indication: NAUSEA
     Dosage: 1 TAB WITH MEALS + SNACK PO
     Route: 048
     Dates: start: 20100123, end: 20100123

REACTIONS (3)
  - HAEMATEMESIS [None]
  - HEART RATE INCREASED [None]
  - HYPERHIDROSIS [None]
